FAERS Safety Report 16111680 (Version 1)
Quarter: 2019Q1

REPORT INFORMATION
  Report Type: Spontaneous
  Country: US (occurrence: US)
  Receive Date: 20190325
  Receipt Date: 20190325
  Transmission Date: 20190418
  Serious: Yes (Hospitalization)
  Sender: FDA-Public Use
  Company Number: US-BAYER-2019-053116

PATIENT
  Sex: Female

DRUGS (1)
  1. ALIQOPA [Suspect]
     Active Substance: COPANLISIB
     Indication: BREAST CANCER
     Dosage: UNK
     Route: 042

REACTIONS (4)
  - Off label use [None]
  - Hyperglycaemia [None]
  - Hypertension [None]
  - Product use in unapproved indication [None]
